FAERS Safety Report 26092866 (Version 1)
Quarter: 2025Q4

REPORT INFORMATION
  Report Type: Spontaneous
  Country: US (occurrence: None)
  Receive Date: 20251126
  Receipt Date: 20251126
  Transmission Date: 20260118
  Serious: Yes (Hospitalization)
  Sender: FDA-CTU
  Company Number: None

PATIENT
  Age: 87 Year
  Sex: Male

DRUGS (1)
  1. VYNDAMAX [Suspect]
     Active Substance: TAFAMIDIS
     Indication: Secondary amyloidosis
     Dosage: OTHER QUANTITY : UNKNOWN NOT FILED BY OPTUM?OTHER FREQUENCY : UNKNOWN NOT FILLED BY OPTUM?
     Route: 048

REACTIONS (5)
  - Asthenia [None]
  - Dyspnoea [None]
  - Cardiac disorder [None]
  - Cardiac failure [None]
  - Renal failure [None]
